FAERS Safety Report 16607155 (Version 3)
Quarter: 2019Q3

REPORT INFORMATION
  Report Type: Spontaneous
  Country: JP (occurrence: JP)
  Receive Date: 20190722
  Receipt Date: 20190806
  Transmission Date: 20191004
  Serious: Yes (Hospitalization, Other)
  Sender: FDA-Public Use
  Company Number: JP-GLAXOSMITHKLINE-JP2019JPN130169

PATIENT
  Sex: Female

DRUGS (6)
  1. LAMICTAL [Suspect]
     Active Substance: LAMOTRIGINE
     Dosage: UNK
     Route: 048
     Dates: start: 2019
  2. MAGMITT [Concomitant]
     Active Substance: MAGNESIUM OXIDE
     Dosage: UNK
  3. CALONAL [Concomitant]
     Active Substance: ACETAMINOPHEN
     Dosage: UNK
  4. QUETIAPINE. [Suspect]
     Active Substance: QUETIAPINE
     Dosage: UNK
     Route: 048
  5. LAMICTAL [Suspect]
     Active Substance: LAMOTRIGINE
     Dosage: 100 MG, UNK
     Route: 048
     Dates: start: 2019, end: 20190720
  6. LAMICTAL [Suspect]
     Active Substance: LAMOTRIGINE
     Indication: BIPOLAR DISORDER
     Dosage: 25 MG, UNK
     Route: 048
     Dates: start: 201905, end: 2019

REACTIONS (18)
  - Endometritis [Unknown]
  - Swelling face [Unknown]
  - Intestinal haemorrhage [Unknown]
  - Endometrial hyperplasia [Unknown]
  - Stomatitis [Unknown]
  - Face oedema [Unknown]
  - Abdominal distension [Unknown]
  - Uterine haemorrhage [Unknown]
  - Hepatic function abnormal [Unknown]
  - Haemophagocytic lymphohistiocytosis [Unknown]
  - Renal impairment [Unknown]
  - Dermatitis [Unknown]
  - Rash [Unknown]
  - Haematochezia [Unknown]
  - Skin swelling [Unknown]
  - Erythema [Unknown]
  - Colitis ischaemic [Unknown]
  - Skin irritation [Unknown]

NARRATIVE: CASE EVENT DATE: 2019
